FAERS Safety Report 11082802 (Version 1)
Quarter: 2015Q2

REPORT INFORMATION
  Report Type: Spontaneous
  Country: DE (occurrence: DE)
  Receive Date: 20150501
  Receipt Date: 20150501
  Transmission Date: 20150821
  Serious: Yes (Other)
  Sender: FDA-Public Use
  Company Number: DE-BAYER-2015-183049

PATIENT
  Sex: Female

DRUGS (1)
  1. ULTRAVIST [Suspect]
     Active Substance: IOPROMIDE
     Dosage: UNK, ONCE
     Route: 042
     Dates: start: 20150408, end: 20150408

REACTIONS (8)
  - Haematoma [Not Recovered/Not Resolved]
  - Malaise [None]
  - Chest discomfort [None]
  - Vascular rupture [None]
  - Injection site extravasation [None]
  - Burning sensation [None]
  - Paraesthesia [None]
  - Peripheral swelling [Not Recovered/Not Resolved]

NARRATIVE: CASE EVENT DATE: 20150408
